FAERS Safety Report 22248265 (Version 1)
Quarter: 2023Q2

REPORT INFORMATION
  Report Type: Spontaneous
  Country: IL (occurrence: IL)
  Receive Date: 20230425
  Receipt Date: 20230425
  Transmission Date: 20230722
  Serious: Yes (Death)
  Sender: FDA-Public Use
  Company Number: IL-ABBVIE-4737290

PATIENT

DRUGS (1)
  1. VENETOCLAX [Suspect]
     Active Substance: VENETOCLAX
     Indication: Primary amyloidosis
     Route: 048

REACTIONS (2)
  - Infection [Fatal]
  - Off label use [Unknown]
